FAERS Safety Report 18292986 (Version 2)
Quarter: 2020Q4

REPORT INFORMATION
  Report Type: Report from Study
  Country: US (occurrence: US)
  Receive Date: 20200921
  Receipt Date: 20201130
  Transmission Date: 20210113
  Serious: No
  Sender: FDA-Public Use
  Company Number: NVSC2020US256852

PATIENT
  Age: 1 Year
  Sex: Male

DRUGS (1)
  1. OMNITROPE [Suspect]
     Active Substance: SOMATROPIN
     Indication: PRODUCT USED FOR UNKNOWN INDICATION
     Dosage: UNK
     Route: 065

REACTIONS (2)
  - Product dose omission issue [Unknown]
  - Incorrect dosage administered [Unknown]

NARRATIVE: CASE EVENT DATE: 20200917
